FAERS Safety Report 5197624-3 (Version None)
Quarter: 2007Q1

REPORT INFORMATION
  Report Type: 
  Country: None (occurrence: None)
  Receive Date: 20070103
  Receipt Date: 20061222
  Transmission Date: 20070707
  Serious: Yes (Other)
  Sender: FDA-Public Use
  Company Number: JP-PFIZER INC-2006149615

PATIENT
  Age: 75 Year
  Sex: Male

DRUGS (3)
  1. DETRUSITOL LA [Suspect]
     Indication: POLLAKIURIA
     Route: 048
  2. AVISHOT [Concomitant]
     Route: 048
  3. VOLTAREN [Concomitant]
     Dates: start: 20061124, end: 20061201

REACTIONS (4)
  - ALANINE AMINOTRANSFERASE INCREASED [None]
  - ASPARTATE AMINOTRANSFERASE INCREASED [None]
  - BLOOD ALKALINE PHOSPHATASE INCREASED [None]
  - HEPATIC FUNCTION ABNORMAL [None]
